FAERS Safety Report 17448505 (Version 1)
Quarter: 2020Q1

REPORT INFORMATION
  Report Type: Spontaneous
  Country: DK (occurrence: DK)
  Receive Date: 20200223
  Receipt Date: 20200223
  Transmission Date: 20200409
  Serious: Yes (Other)
  Sender: FDA-Public Use
  Company Number: DK-ACCORD-169409

PATIENT
  Age: 25 Year
  Sex: Female

DRUGS (4)
  1. MYCOPHENOLIC ACID. [Suspect]
     Active Substance: MYCOPHENOLIC ACID
     Indication: RENAL TRANSPLANT
     Route: 065
  2. BASILIXIMAB [Concomitant]
     Active Substance: BASILIXIMAB
  3. PREDNISOLONE. [Suspect]
     Active Substance: PREDNISOLONE
  4. ECULIZUMAB [Suspect]
     Active Substance: ECULIZUMAB
     Indication: RENAL TRANSPLANT
     Dosage: 1200 MG
     Route: 042

REACTIONS (9)
  - Atypical haemolytic uraemic syndrome [Unknown]
  - Complement factor decreased [Unknown]
  - Complications of transplanted kidney [Unknown]
  - Thrombocytopenia [Unknown]
  - Premature delivery [Unknown]
  - Haptoglobin decreased [Unknown]
  - Maternal exposure during pregnancy [Unknown]
  - Haemoglobin decreased [Unknown]
  - Haemolytic anaemia [Unknown]
